FAERS Safety Report 16626810 (Version 4)
Quarter: 2019Q3

REPORT INFORMATION
  Report Type: Spontaneous
  Country: US (occurrence: US)
  Receive Date: 20190724
  Receipt Date: 20190830
  Transmission Date: 20191004
  Serious: No
  Sender: FDA-Public Use
  Company Number: US-SA-2019SA197555

PATIENT
  Age: 63 Year
  Sex: Male
  Weight: 84.35 kg

DRUGS (2)
  1. PRALUENT [Suspect]
     Active Substance: ALIROCUMAB
     Indication: HYPERLIPIDAEMIA
  2. PRALUENT [Suspect]
     Active Substance: ALIROCUMAB
     Indication: TYPE IIA HYPERLIPIDAEMIA
     Dosage: 75 MG, QOW
     Route: 058
     Dates: start: 20190710, end: 2019

REACTIONS (18)
  - Eye swelling [Unknown]
  - Palpitations [Unknown]
  - Pain [Unknown]
  - Fatigue [Unknown]
  - Paraesthesia [Unknown]
  - Cough [Unknown]
  - Injection site swelling [Unknown]
  - Unevaluable event [Unknown]
  - Muscle spasms [Unknown]
  - Injection site pain [Unknown]
  - Rhinorrhoea [Unknown]
  - Chills [Unknown]
  - Dizziness [Unknown]
  - Blood pressure fluctuation [Unknown]
  - Asthenia [Unknown]
  - Nasopharyngitis [Unknown]
  - Eye pain [Unknown]
  - Nervousness [Unknown]

NARRATIVE: CASE EVENT DATE: 201907
